FAERS Safety Report 6999336-X (Version None)
Quarter: 2010Q3

REPORT INFORMATION
  Report Type: 
  Country: None (occurrence: None)
  Receive Date: 20100920
  Receipt Date: 20100301
  Transmission Date: 20110219
  Serious: Yes (Other)
  Sender: FDA-Public Use
  Company Number: US-ASTRAZENECA-2009UW20951

PATIENT
  Sex: Female

DRUGS (7)
  1. SEROQUEL [Suspect]
     Route: 048
     Dates: start: 20061229
  2. LEXAPRO [Concomitant]
     Dates: start: 20061229
  3. DIGOXIN [Concomitant]
     Dosage: 125 MCG DISPENSED
     Dates: start: 20061229
  4. PLAVIX [Concomitant]
     Dates: start: 20061229
  5. BETHANECHOL [Concomitant]
     Dates: start: 20061229
  6. FLOMAX [Concomitant]
     Dates: start: 20061229
  7. OMNICEF [Concomitant]
     Dates: start: 20070117

REACTIONS (3)
  - DIABETES MELLITUS [None]
  - KETOACIDOSIS [None]
  - PANCREATITIS [None]
